FAERS Safety Report 6716552-2 (Version None)
Quarter: 2010Q2

REPORT INFORMATION
  Report Type: 
  Country: None (occurrence: None)
  Receive Date: 20100507
  Receipt Date: 20100427
  Transmission Date: 20101027
  Serious: Yes (Life-Threatening, Hospitalization, Other)
  Sender: FDA-Public Use
  Company Number: US-ELI_LILLY_AND_COMPANY-US201005000201

PATIENT
  Age: 60 Year
  Sex: Male

DRUGS (2)
  1. CYMBALTA [Suspect]
     Indication: DEPRESSION
     Dosage: 60 MG, DAILY (1/D)
  2. PRISTIQ [Concomitant]

REACTIONS (3)
  - MULTI-ORGAN FAILURE [None]
  - TREMOR [None]
  - UNRESPONSIVE TO STIMULI [None]
